FAERS Safety Report 8003157-9 (Version None)
Quarter: 2011Q4

REPORT INFORMATION
  Report Type: 
  Country: None (occurrence: None)
  Receive Date: 20111222
  Receipt Date: 20111213
  Transmission Date: 20120403
  Serious: Yes (Other)
  Sender: FDA-Public Use
  Company Number: PHEH2011US02927

PATIENT
  Sex: Male

DRUGS (10)
  1. MULTIVITAMIN [Concomitant]
  2. CALCITRIOL [Concomitant]
  3. ALLOPURINOL [Concomitant]
  4. NIFEDIPINE [Concomitant]
  5. MYFORTIC [Suspect]
     Indication: RENAL TRANSPLANT
     Dosage: 360 MG, BID
     Route: 048
     Dates: start: 20100806
  6. PROGRAF [Suspect]
     Dosage: 1 MG, BID
     Route: 048
     Dates: start: 20080908
  7. LISINOPRIL [Concomitant]
  8. VITAMIN C [Concomitant]
  9. SIMVASTATIN [Concomitant]
  10. GLIPIZIDE [Concomitant]

REACTIONS (6)
  - PARANOIA [None]
  - FATIGUE [None]
  - MALAISE [None]
  - ABDOMINAL DISCOMFORT [None]
  - CHILLS [None]
  - DRUG INEFFECTIVE [None]
